FAERS Safety Report 18948206 (Version 2)
Quarter: 2021Q1

REPORT INFORMATION
  Report Type: Other
  Country: US (occurrence: US)
  Receive Date: 20210226
  Receipt Date: 20210312
  Transmission Date: 20210420
  Serious: No
  Sender: FDA-Public Use
  Company Number: US-ROCHE-2777271

PATIENT
  Sex: Male
  Weight: 45.7 kg

DRUGS (10)
  1. SYNTHROID [Concomitant]
     Active Substance: LEVOTHYROXINE SODIUM
     Dosage: 75 MCG 88? ONCE A DAY
  2. GENOTROPIN [Concomitant]
     Active Substance: SOMATROPIN
     Dosage: 6 TIMES PER WEEK
  3. SOLU?CORTEF [Concomitant]
     Active Substance: HYDROCORTISONE SODIUM SUCCINATE
     Indication: ADRENOCORTICAL INSUFFICIENCY ACUTE
     Dosage: 1 FOR HOME, 1 FOR SCHOOL, ACT?O?VIAL 100 MG/ 2 ML SOLUTION FOR INJECTION
     Route: 030
  4. NUTROPIN [Suspect]
     Active Substance: SOMATROPIN
  5. HYDROCORTISONE. [Concomitant]
     Active Substance: HYDROCORTISONE
     Route: 042
  6. HYDROCORTISONE. [Concomitant]
     Active Substance: HYDROCORTISONE
     Indication: INJURY
     Dosage: + HALF 3 TIMES A DAY
     Route: 048
  7. HYDROCORTISONE. [Concomitant]
     Active Substance: HYDROCORTISONE
     Indication: ILLNESS
  8. ZOFRAN [Concomitant]
     Active Substance: ONDANSETRON HYDROCHLORIDE
     Indication: NAUSEA
     Dosage: 1 TABLET EVERY 8 HOURS AS NEEDED
     Route: 048
  9. ZOFRAN [Concomitant]
     Active Substance: ONDANSETRON HYDROCHLORIDE
     Indication: VOMITING
  10. NUTROPIN [Suspect]
     Active Substance: SOMATROPIN
     Indication: HYPOPITUITARISM
     Dosage: 0.6 MG INJECTED 6 DAYS PER WEEK
     Route: 058
     Dates: start: 2018

REACTIONS (3)
  - Fatigue [Unknown]
  - Ear infection [Unknown]
  - Nasopharyngitis [Unknown]
